FAERS Safety Report 6568756-X (Version None)
Quarter: 2010Q1

REPORT INFORMATION
  Report Type: 
  Country: None (occurrence: None)
  Receive Date: 20100203
  Receipt Date: 20100127
  Transmission Date: 20100710
  Serious: Yes (Death)
  Sender: FDA-Public Use
  Company Number: GXKR2009GB00840

PATIENT
  Age: 49 Year
  Sex: Female

DRUGS (10)
  1. METFORMIN (NGX) [Suspect]
     Indication: DIABETES MELLITUS
     Dosage: 1000 MG, BID
     Route: 048
     Dates: start: 20060101
  2. AMISULPRIDE [Suspect]
     Indication: ABNORMAL BEHAVIOUR
     Dosage: 600 MG/DAY
     Route: 048
     Dates: start: 20060101
  3. DIAZEPAM [Concomitant]
  4. HYDROCORTISONE [Concomitant]
     Route: 061
  5. INSULIN [Concomitant]
  6. MOVICOL [Concomitant]
  7. QUETIAPINE [Concomitant]
  8. SENNA [Concomitant]
  9. TRAZODONE [Concomitant]
  10. ZOPICLONE [Concomitant]

REACTIONS (1)
  - DRUG LEVEL ABOVE THERAPEUTIC [None]
